FAERS Safety Report 20101218 (Version 1)
Quarter: 2021Q4

REPORT INFORMATION
  Report Type: Spontaneous
  Country: HK (occurrence: HK)
  Receive Date: 20211123
  Receipt Date: 20211123
  Transmission Date: 20220303
  Serious: Yes (Other)
  Sender: FDA-Public Use
  Company Number: HK-009507513-2111HKG006924

PATIENT
  Age: 29 Year
  Sex: Female

DRUGS (2)
  1. PEMBROLIZUMAB [Suspect]
     Active Substance: PEMBROLIZUMAB
     Indication: Nasopharyngeal cancer metastatic
     Dosage: 2 MG/KG EVERY THREE WEEKS
     Dates: start: 201609, end: 2018
  2. PEMBROLIZUMAB [Suspect]
     Active Substance: PEMBROLIZUMAB
     Indication: Metastases to lung
     Dosage: UNK
     Dates: start: 201812

REACTIONS (4)
  - Tuberculosis [Recovered/Resolved]
  - Terminal ileitis [Recovered/Resolved]
  - Glucocorticoid deficiency [Recovered/Resolved]
  - Hypothyroidism [Recovered/Resolved]

NARRATIVE: CASE EVENT DATE: 20180501
